FAERS Safety Report 5512470-6 (Version None)
Quarter: 2007Q4

REPORT INFORMATION
  Report Type: 
  Country: None (occurrence: None)
  Receive Date: 20071112
  Receipt Date: 20070316
  Transmission Date: 20080405
  Serious: No
  Sender: FDA-Public Use
  Company Number: A0643558A

PATIENT
  Age: 70 Year
  Sex: Female

DRUGS (8)
  1. AVANDAMET [Suspect]
     Dosage: 1TAB TWICE PER DAY
     Route: 048
     Dates: start: 20070316
  2. COUMADIN [Concomitant]
  3. AMARYL [Concomitant]
  4. NIFEDIPINE [Concomitant]
  5. LOVASTATIN [Concomitant]
  6. GLUCOPHAGE [Concomitant]
  7. ATENOLOL [Concomitant]
  8. GLIMEPIRIDE [Concomitant]

REACTIONS (1)
  - DYSGEUSIA [None]
